FAERS Safety Report 9914182 (Version 3)
Quarter: 2016Q4

REPORT INFORMATION
  Report Type: Report from Study
  Country: JP (occurrence: JP)
  Receive Date: 20140220
  Receipt Date: 20161128
  Transmission Date: 20170207
  Serious: Yes (Death, Hospitalization)
  Sender: FDA-Public Use
  Company Number: JP-NOVOPROD-400391

PATIENT
  Age: 71 Year
  Sex: Male
  Weight: 65.5 kg

DRUGS (24)
  1. VICTOZA [Suspect]
     Active Substance: LIRAGLUTIDE
     Dosage: 0.9 MG, QD
     Route: 058
     Dates: start: 20120418, end: 20130306
  2. BAYASPIRIN [Concomitant]
     Active Substance: ASPIRIN
     Dosage: UNK
     Route: 048
  3. LASIX [Concomitant]
     Active Substance: FUROSEMIDE
     Route: 048
  4. SIGMART [Concomitant]
     Active Substance: NICORANDIL
     Route: 048
  5. NESP [Concomitant]
     Active Substance: DARBEPOETIN ALFA
     Route: 048
  6. CARDENALIN [Concomitant]
     Active Substance: DOXAZOSIN MESYLATE
     Route: 048
  7. PLETAAL [Concomitant]
     Active Substance: CILOSTAZOL
     Route: 048
  8. HOKUNALIN                          /00654901/ [Concomitant]
     Active Substance: TULOBUTEROL
     Route: 062
  9. FERROMIA [Concomitant]
     Active Substance: FERROUS CITRATE
     Route: 048
  10. NOVORAPID [Concomitant]
     Active Substance: INSULIN ASPART
     Dosage: 4 U, QD
     Route: 065
     Dates: start: 20120411, end: 20120411
  11. WARFARIN POTASSIUM [Concomitant]
     Active Substance: WARFARIN POTASSIUM
     Route: 048
  12. TAKEPRON [Concomitant]
     Active Substance: LANSOPRAZOLE
     Route: 048
  13. ZYLORIC [Concomitant]
     Active Substance: ALLOPURINOL
     Route: 048
  14. VICTOZA [Suspect]
     Active Substance: LIRAGLUTIDE
     Dosage: 0.6 MG QD
     Route: 058
     Dates: start: 20120414, end: 20120417
  15. VICTOZA [Suspect]
     Active Substance: LIRAGLUTIDE
     Dosage: 0.6 MG, QD
     Route: 058
     Dates: start: 20130307, end: 20131218
  16. NOVORAPID [Concomitant]
     Active Substance: INSULIN ASPART
     Indication: TYPE 2 DIABETES MELLITUS
     Dosage: 14 IU, QD
     Route: 065
     Dates: end: 20120410
  17. NOVORAPID [Concomitant]
     Active Substance: INSULIN ASPART
     Dosage: 6 U, QD
     Route: 065
     Dates: start: 20120412, end: 20120412
  18. MICARDIS [Concomitant]
     Active Substance: TELMISARTAN
     Route: 048
  19. FLIVAS [Concomitant]
     Active Substance: NAFTOPIDIL
     Route: 048
  20. LIPITOR [Concomitant]
     Active Substance: ATORVASTATIN CALCIUM
     Route: 048
  21. MAGMITT [Concomitant]
     Active Substance: MAGNESIUM OXIDE
     Route: 048
  22. MEXIBAL [Concomitant]
     Route: 048
  23. VICTOZA [Suspect]
     Active Substance: LIRAGLUTIDE
     Indication: TYPE 2 DIABETES MELLITUS
     Dosage: 0.3 MG, QD (MORNING)
     Route: 058
     Dates: start: 20120411, end: 20120413
  24. NOVORAPID [Concomitant]
     Active Substance: INSULIN ASPART
     Dosage: 4 U, QD
     Route: 065
     Dates: start: 20120413, end: 20120414

REACTIONS (2)
  - Cardiac failure [Fatal]
  - Ileus paralytic [Recovered/Resolved]

NARRATIVE: CASE EVENT DATE: 20131029
